FAERS Safety Report 5533790-5 (Version None)
Quarter: 2007Q4

REPORT INFORMATION
  Report Type: 
  Country: None (occurrence: None)
  Receive Date: 20071204
  Receipt Date: 20071127
  Transmission Date: 20080405
  Serious: Yes (Death, Hospitalization)
  Sender: FDA-Public Use
  Company Number: US-ELI_LILLY_AND_COMPANY-US200711005991

PATIENT
  Age: 47 Year
  Sex: Male
  Weight: 201.36 kg

DRUGS (5)
  1. BYETTA [Suspect]
     Dosage: 5 MG, 2/D
     Route: 058
     Dates: start: 20070613, end: 20070712
  2. BYETTA [Suspect]
     Dosage: 10 UG, 2/D
     Route: 058
     Dates: start: 20070713
  3. METFORMIN HCL [Concomitant]
     Dosage: UNK, UNK
  4. VYTORIN [Concomitant]
     Dosage: UNK, UNK
  5. CLARITIN [Concomitant]
     Dosage: UNK, UNK

REACTIONS (3)
  - CHOLELITHIASIS [None]
  - HEPATIC STEATOSIS [None]
  - PANCREATITIS HAEMORRHAGIC [None]
